FAERS Safety Report 6330498-3 (Version None)
Quarter: 2009Q3

REPORT INFORMATION
  Report Type: 
  Country: None (occurrence: None)
  Receive Date: 20090827
  Receipt Date: 20090826
  Transmission Date: 20100115
  Serious: Yes (Life-Threatening, Other)
  Sender: FDA-Public Use
  Company Number: US-WYE-H10723009

PATIENT
  Age: 42 Year
  Sex: Female
  Weight: 68.1 kg

DRUGS (3)
  1. PRISTIQ [Suspect]
     Indication: DEPRESSION
     Route: 048
     Dates: start: 20090308, end: 20090323
  2. BENZTROPINE MESYLATE [Concomitant]
     Dosage: .5 MG, FREQUENCY UNSPECIFIED
  3. HALOPERIDOL [Concomitant]
     Indication: SCHIZOPHRENIA
     Dosage: 150 MG, FREQUENCY UNSPECIFIED

REACTIONS (2)
  - DIZZINESS [None]
  - SWELLING [None]
